FAERS Safety Report 14261533 (Version 1)
Quarter: 2017Q4

REPORT INFORMATION
  Report Type: Spontaneous
  Country: US (occurrence: US)
  Receive Date: 20171208
  Receipt Date: 20171208
  Transmission Date: 20180321
  Serious: Yes (Other)
  Sender: FDA-Public Use
  Company Number: US-ASTRAZENECA-2017SF23507

PATIENT
  Sex: Female

DRUGS (30)
  1. HYDROCODONE/ACETAMINOPHEN [Concomitant]
     Active Substance: ACETAMINOPHEN\HYDROCODONE
     Indication: PAIN
     Dosage: 10 MG /325 MG, 1-2 DF EVERY 3 HOURS
     Route: 048
  2. FASLODEX [Suspect]
     Active Substance: FULVESTRANT
     Indication: BREAST CANCER FEMALE
     Dosage: 500 MG, DAY 1, 15 AND 29 THEN EVERY 28 DAYS
     Route: 030
     Dates: start: 20140109, end: 20140918
  3. ARANESP [Concomitant]
     Active Substance: DARBEPOETIN ALFA
     Indication: BREAST CANCER FEMALE
     Dates: start: 20150303, end: 20170321
  4. LIDOCAINE. [Concomitant]
     Active Substance: LIDOCAINE
     Dosage: APPLY TO AFFECTED AREA 2-3 TIMES A DAY
     Route: 061
  5. LOMOTIL [Concomitant]
     Active Substance: ATROPINE SULFATE\DIPHENOXYLATE HYDROCHLORIDE
     Indication: DIARRHOEA
     Dosage: 2.5 MG /0.025 MG, 1-2 TABS EVERY 6 HOURS AS REQUIRED
     Route: 048
  6. ARANESP [Concomitant]
     Active Substance: DARBEPOETIN ALFA
     Indication: ANAEMIA
     Dates: start: 20150303, end: 20170321
  7. NAVELBINE [Concomitant]
     Active Substance: VINORELBINE TARTRATE
     Indication: BREAST CANCER FEMALE
     Dosage: 1000 MG/M2
     Dates: start: 20160302, end: 20160913
  8. LYRICA [Concomitant]
     Active Substance: PREGABALIN
     Route: 048
  9. TYLENOL [Concomitant]
     Active Substance: ACETAMINOPHEN
     Route: 048
  10. ABRAXANE [Concomitant]
     Active Substance: PACLITAXEL
     Indication: BREAST CANCER FEMALE
     Dosage: 80 MG/M2
     Dates: start: 20141202, end: 20150106
  11. DIAZEPAM. [Concomitant]
     Active Substance: DIAZEPAM
     Dosage: 1.0DF AS REQUIRED
     Route: 048
  12. MUCINEX [Concomitant]
     Active Substance: GUAIFENESIN
     Dosage: 1 DF, 3-4 TIMES A DAY
     Route: 048
  13. HALAVEN [Concomitant]
     Active Substance: ERIBULIN MESYLATE
     Indication: BREAST CANCER FEMALE
     Dosage: 1000 MG/M2
     Dates: start: 20160920, end: 20170222
  14. AMLODIPINE [Concomitant]
     Active Substance: AMLODIPINE BESYLATE
     Route: 048
  15. CELEXA [Concomitant]
     Active Substance: CITALOPRAM HYDROBROMIDE
     Route: 048
  16. LYRICA [Concomitant]
     Active Substance: PREGABALIN
     Route: 048
  17. ZOFRAN ODT [Concomitant]
     Active Substance: ONDANSETRON HYDROCHLORIDE
     Indication: PROPHYLAXIS
     Route: 048
  18. GEMZAR [Concomitant]
     Active Substance: GEMCITABINE HYDROCHLORIDE
     Indication: BREAST CANCER FEMALE
     Dosage: 1000 MG/M2
     Dates: start: 20150818, end: 20160223
  19. PROCHLORPERAZINE MALEATE. [Concomitant]
     Active Substance: PROCHLORPERAZINE MALEATE
     Indication: NAUSEA
     Dosage: 1 DF, EVERY 6-8 HOURS AS REQURIED
     Route: 048
  20. VITAMIN D3 [Concomitant]
     Active Substance: CHOLECALCIFEROL
     Route: 048
  21. METOPROLOL TARTRATE. [Suspect]
     Active Substance: METOPROLOL TARTRATE
     Route: 048
     Dates: start: 20160530
  22. FEMARA [Concomitant]
     Active Substance: LETROZOLE
     Route: 048
  23. ABRAXANE [Concomitant]
     Active Substance: PACLITAXEL
     Indication: BREAST CANCER FEMALE
     Dosage: 100 MG/M2
     Dates: start: 20130731, end: 20140109
  24. ABRAXANE [Concomitant]
     Active Substance: PACLITAXEL
     Indication: BREAST CANCER FEMALE
     Dosage: 100 MG/M2
     Dates: start: 20150120, end: 20150702
  25. METOPROLOL TARTRATE. [Suspect]
     Active Substance: METOPROLOL TARTRATE
     Route: 048
     Dates: start: 20160330
  26. IBRANCE [Suspect]
     Active Substance: PALBOCICLIB
     Dosage: 1 DF DAILY FOR 21 DAYS, THEN OFF 7 DAYS
     Route: 048
     Dates: start: 20170606
  27. XGEVA [Concomitant]
     Active Substance: DENOSUMAB
     Indication: BREAST CANCER FEMALE
     Route: 058
     Dates: start: 20140109, end: 20170105
  28. ARANESP [Concomitant]
     Active Substance: DARBEPOETIN ALFA
     Indication: BREAST CANCER FEMALE
     Dates: start: 20131002, end: 20140430
  29. ARANESP [Concomitant]
     Active Substance: DARBEPOETIN ALFA
     Indication: ANAEMIA
     Dates: start: 20131002, end: 20140430
  30. CYCLOPHOSPHAMIDE. [Concomitant]
     Active Substance: CYCLOPHOSPHAMIDE
     Route: 048

REACTIONS (1)
  - Malignant neoplasm progression [Unknown]
